FAERS Safety Report 21365107 (Version 7)
Quarter: 2023Q4

REPORT INFORMATION
  Report Type: Spontaneous
  Country: US (occurrence: US)
  Receive Date: 20220922
  Receipt Date: 20231128
  Transmission Date: 20240109
  Serious: No
  Sender: FDA-Public Use
  Company Number: US-PFIZER INC-PV202200067375

PATIENT
  Age: 79 Year
  Sex: Female
  Weight: 59.42 kg

DRUGS (4)
  1. XELJANZ [Suspect]
     Active Substance: TOFACITINIB CITRATE
     Indication: Rheumatoid arthritis
     Dosage: 5 MG
  2. XELJANZ [Suspect]
     Active Substance: TOFACITINIB CITRATE
     Indication: Polyarthritis
     Dosage: 5 MG, BID (60 TABLETS)
     Route: 048
  3. XELJANZ [Suspect]
     Active Substance: TOFACITINIB CITRATE
     Dosage: 5 MG, QD (30 TABLETS, 60 TABLETS)
     Route: 048
  4. MULTAQ [Concomitant]
     Active Substance: DRONEDARONE
     Indication: Palpitations
     Dosage: 400 MG TWICE A DAY

REACTIONS (4)
  - Pain in extremity [Unknown]
  - Pain [Recovered/Resolved]
  - Arthralgia [Unknown]
  - Product prescribing error [Unknown]
